FAERS Safety Report 7495401-1 (Version None)
Quarter: 2011Q2

REPORT INFORMATION
  Report Type: 
  Country: None (occurrence: None)
  Receive Date: 20110513
  Receipt Date: 20110428
  Transmission Date: 20111010
  Serious: Yes (Hospitalization, Other)
  Sender: FDA-Public Use
  Company Number: DSM-2011-00449

PATIENT
  Age: 58 Year
  Sex: Male

DRUGS (4)
  1. AVLOCARDIL (PROPRANOLOL) (PROPRANOLOL) [Concomitant]
  2. HAVLANE (LOPRAZOLAM MESILATE) (LOPRAZOLAM MESILATE) [Concomitant]
  3. AMLODIPINE BESYLATE AND OLMESARTAN MEDOXOMIL [Suspect]
     Indication: PRODUCT USED FOR UNKNOWN INDICATION
     Dosage: 40/10 MG,ORAL ; 20/5 MG,ORAL
     Route: 048
     Dates: start: 20110415, end: 20110419
  4. AMLODIPINE BESYLATE AND OLMESARTAN MEDOXOMIL [Suspect]
     Indication: PRODUCT USED FOR UNKNOWN INDICATION
     Dosage: 40/10 MG,ORAL ; 20/5 MG,ORAL
     Route: 048
     Dates: start: 20110401, end: 20110415

REACTIONS (5)
  - FACE OEDEMA [None]
  - OEDEMA PERIPHERAL [None]
  - LUNG NEOPLASM MALIGNANT [None]
  - COLLATERAL CIRCULATION [None]
  - VASCULAR COMPRESSION [None]
